FAERS Safety Report 8416264-3 (Version None)
Quarter: 2012Q2

REPORT INFORMATION
  Report Type: 
  Country: None (occurrence: None)
  Receive Date: 20120606
  Receipt Date: 20120524
  Transmission Date: 20120825
  Serious: Yes (Hospitalization, Other)
  Sender: FDA-Public Use
  Company Number: US-ELI_LILLY_AND_COMPANY-US201202005825

PATIENT
  Sex: Male

DRUGS (4)
  1. CYMBALTA [Suspect]
     Indication: MAJOR DEPRESSION
     Dosage: 60 MG, QD
     Route: 048
     Dates: start: 20110425, end: 20110701
  2. CYMBALTA [Suspect]
     Dosage: 30 MG, QD
     Dates: start: 20110829
  3. PREVACID [Concomitant]
  4. ALLOPURINOL [Concomitant]

REACTIONS (5)
  - OVERDOSE [None]
  - DEPRESSION [None]
  - PROSTATE CANCER RECURRENT [None]
  - VOMITING [None]
  - DEHYDRATION [None]
